FAERS Safety Report 14552878 (Version 3)
Quarter: 2018Q2

REPORT INFORMATION
  Report Type: Report from Study
  Country: JP (occurrence: JP)
  Receive Date: 20180220
  Receipt Date: 20180420
  Transmission Date: 20180711
  Serious: Yes (Death, Life-Threatening, Hospitalization, Disabling)
  Sender: FDA-Public Use
  Company Number: JP-ACTELION-A-CH2017-150318

PATIENT
  Age: 43 Year
  Sex: Female

DRUGS (37)
  1. UPTRAVI [Suspect]
     Active Substance: SELEXIPAG
     Indication: PULMONARY ARTERIAL HYPERTENSION
     Dosage: 0.2 MG, BID
     Route: 048
     Dates: start: 20161129, end: 20170105
  2. UPTRAVI [Suspect]
     Active Substance: SELEXIPAG
     Dosage: 1.0 MG, BID
     Route: 048
     Dates: start: 20170106, end: 20170831
  3. FUROSEMIDE. [Concomitant]
     Active Substance: FUROSEMIDE
  4. SPIRONOLACTON [Concomitant]
     Active Substance: SPIRONOLACTONE
  5. SAMSCA [Concomitant]
     Active Substance: TOLVAPTAN
  6. MEDROL [Concomitant]
     Active Substance: METHYLPREDNISOLONE
  7. SOL-MELCORT [Concomitant]
     Active Substance: METHYLPREDNISOLONE SODIUM SUCCINATE
  8. TRICHLORMETHIAZIDE [Concomitant]
     Active Substance: TRICHLORMETHIAZIDE
  9. TREPROST [Concomitant]
     Active Substance: TREPROSTINIL
  10. PIMOBENDAN [Suspect]
     Active Substance: PIMOBENDAN
     Indication: PULMONARY ARTERIAL HYPERTENSION
     Dosage: 1.25 MG, BID
     Route: 048
     Dates: start: 20161004
  11. PIMOBENDAN [Suspect]
     Active Substance: PIMOBENDAN
     Dosage: 1.25 MG, QD
     Route: 048
     Dates: start: 20161115, end: 20170907
  12. ADCIRCA [Concomitant]
     Active Substance: TADALAFIL
  13. VOLIBRIS [Concomitant]
     Active Substance: AMBRISENTAN
  14. REVATIO [Concomitant]
     Active Substance: SILDENAFIL CITRATE
  15. EPOPROSTENOL ACT [Suspect]
     Active Substance: EPOPROSTENOL
     Dosage: 40.2 NG/KG, PER MIN
     Route: 042
     Dates: start: 20170830
  16. EPOPROSTENOL ACT [Suspect]
     Active Substance: EPOPROSTENOL
     Dosage: 7.9 NG/KG, PER MIN
     Route: 042
     Dates: end: 20170921
  17. PIMOBENDAN [Suspect]
     Active Substance: PIMOBENDAN
     Dosage: 3.75 MG, QD
     Route: 048
     Dates: start: 20161015
  18. BOSMIN [Suspect]
     Active Substance: EPINEPHRINE
     Indication: PULMONARY ARTERIAL HYPERTENSION
     Dosage: 0.02 UNK, UNK
     Route: 042
     Dates: start: 20161025, end: 20170928
  19. URSO [Concomitant]
     Active Substance: URSODIOL
  20. RABEPRAZOL [Concomitant]
     Active Substance: RABEPRAZOLE
  21. OXYGEN. [Concomitant]
     Active Substance: OXYGEN
  22. EPOPROSTENOL ACT [Suspect]
     Active Substance: EPOPROSTENOL
     Dosage: 44.4 NG/KG, PER MIN
     Route: 042
  23. TRACLEER [Suspect]
     Active Substance: BOSENTAN
     Indication: PULMONARY ARTERIAL HYPERTENSION
     Dosage: 62.5 UNK, UNK
     Route: 048
  24. OPSUMIT [Concomitant]
     Active Substance: MACITENTAN
  25. EPOPROSTENOL ACT [Suspect]
     Active Substance: EPOPROSTENOL
     Dosage: 69 NG/KG, PER MIN
     Route: 042
     Dates: start: 20170626
  26. EPOPROSTENOL ACT [Suspect]
     Active Substance: EPOPROSTENOL
     Dosage: 40.2 NG/KG, PER MIN
     Route: 042
  27. BONALON [Concomitant]
     Active Substance: ALENDRONATE SODIUM
  28. K-SUPPLY [Concomitant]
     Active Substance: POTASSIUM CHLORIDE
  29. BAKTAR [Concomitant]
     Active Substance: SULFAMETHOXAZOLE\TRIMETHOPRIM
  30. DOBUPUM [Suspect]
     Active Substance: DOBUTAMINE HYDROCHLORIDE
     Indication: PULMONARY ARTERIAL HYPERTENSION
     Dosage: 2 ?G/KG, PER MIN
     Route: 042
     Dates: start: 20160921, end: 20160922
  31. VENTAVIS [Concomitant]
     Active Substance: ILOPROST
     Indication: PULMONARY ARTERIAL HYPERTENSION
  32. EPOPROSTENOL ACT [Suspect]
     Active Substance: EPOPROSTENOL
     Indication: PULMONARY ARTERIAL HYPERTENSION
     Dosage: 62.0 NG/KG, PER MIN
     Route: 042
     Dates: start: 20150930
  33. EPOPROSTENOL ACT [Suspect]
     Active Substance: EPOPROSTENOL
     Dosage: 64.3 NG/KG, PER MIN
     Route: 042
     Dates: start: 20170728
  34. EPOPROSTENOL ACT [Suspect]
     Active Substance: EPOPROSTENOL
     Dosage: 31.9 NG/KG, PER MIN
     Route: 042
  35. EPOPROSTENOL ACT [Suspect]
     Active Substance: EPOPROSTENOL
     Dosage: 29.4 NG/KG, PER MIN
     Route: 042
  36. DOBUTREX [Suspect]
     Active Substance: DOBUTAMINE HYDROCHLORIDE
     Indication: PULMONARY ARTERIAL HYPERTENSION
     Dosage: 2 ?G/KG, PER MIN
     Route: 042
     Dates: start: 20160728, end: 20160730
  37. AMIODARONE [Suspect]
     Active Substance: AMIODARONE
     Indication: PRODUCT USED FOR UNKNOWN INDICATION
     Route: 065

REACTIONS (24)
  - Depression [Not Recovered/Not Resolved]
  - Platelet count decreased [Recovering/Resolving]
  - Platelet transfusion [Unknown]
  - Nausea [Not Recovered/Not Resolved]
  - Fluid retention [Recovering/Resolving]
  - Malaise [Not Recovered/Not Resolved]
  - Decreased appetite [Not Recovered/Not Resolved]
  - Low cardiac output syndrome [Recovering/Resolving]
  - Drug eruption [Recovering/Resolving]
  - Abdominal distension [Recovering/Resolving]
  - Pyrexia [Recovered/Resolved]
  - Pulmonary arterial hypertension [Fatal]
  - Atrial tachycardia [Recovered/Resolved]
  - Abdominal pain [Not Recovered/Not Resolved]
  - Thrombocytopenia [Fatal]
  - Blood pressure decreased [Recovering/Resolving]
  - Diarrhoea [Recovering/Resolving]
  - Cardiac failure [Fatal]
  - Abdominal pain upper [Not Recovered/Not Resolved]
  - Immune thrombocytopenic purpura [Fatal]
  - Renal impairment [Not Recovered/Not Resolved]
  - Liver disorder [Unknown]
  - Dyspnoea exertional [Recovering/Resolving]
  - Iron deficiency anaemia [Not Recovered/Not Resolved]

NARRATIVE: CASE EVENT DATE: 20151001
